FAERS Safety Report 13125029 (Version 1)
Quarter: 2017Q1

REPORT INFORMATION
  Report Type: Report from Study
  Country: US (occurrence: US)
  Receive Date: 20170118
  Receipt Date: 20170118
  Transmission Date: 20170428
  Serious: Yes (Other)
  Sender: FDA-Public Use
  Company Number: US-KYOWAKIRIN-2017BKK000085

PATIENT

DRUGS (1)
  1. GRANISETRON [Suspect]
     Active Substance: GRANISETRON
     Indication: PROPHYLAXIS OF NAUSEA AND VOMITING
     Dosage: 1 DF, APPLIED BEFORE EVERY CHEMO APPOINTMENT
     Route: 062
     Dates: start: 20170108, end: 20170109

REACTIONS (5)
  - Discomfort [Unknown]
  - Pyrexia [Unknown]
  - Tooth abscess [Unknown]
  - Inappropriate schedule of drug administration [Recovered/Resolved]
  - Nausea [Unknown]

NARRATIVE: CASE EVENT DATE: 20170108
